FAERS Safety Report 7602057-3 (Version None)
Quarter: 2011Q3

REPORT INFORMATION
  Report Type: 
  Country: None (occurrence: None)
  Receive Date: 20110711
  Receipt Date: 20110630
  Transmission Date: 20111222
  Serious: Yes (Other)
  Sender: FDA-Public Use
  Company Number: CHPA2011JP06514

PATIENT
  Sex: Female

DRUGS (4)
  1. HUMULIN R [Concomitant]
     Indication: DIABETES MELLITUS
     Dosage: 18 IU, UNK
     Route: 058
     Dates: start: 20000515
  2. HUMULIN N [Concomitant]
     Indication: DIABETES MELLITUS
     Dosage: 10 IU, UNK
     Route: 058
     Dates: start: 20000515
  3. PURSENNID [Suspect]
     Indication: CONSTIPATION
     Dosage: 24 MG, QD
     Route: 048
     Dates: start: 20010124
  4. HALCION [Concomitant]
     Indication: INSOMNIA
     Dosage: 0.25 MG, UNK
     Route: 048
     Dates: start: 20000510

REACTIONS (4)
  - NERVOUS SYSTEM DISORDER [None]
  - HYPERLIPIDAEMIA [None]
  - GASTROINTESTINAL TRACT MUCOSAL PIGMENTATION [None]
  - INCORRECT DRUG ADMINISTRATION DURATION [None]
